FAERS Safety Report 8261402-9 (Version None)
Quarter: 2012Q2

REPORT INFORMATION
  Report Type: 
  Country: None (occurrence: None)
  Receive Date: 20120405
  Receipt Date: 20120328
  Transmission Date: 20120825
  Serious: Yes (Hospitalization, Other)
  Sender: FDA-Public Use
  Company Number: US-BAYER-2011-041799

PATIENT
  Age: 35 Year
  Sex: Female
  Weight: 113.38 kg

DRUGS (5)
  1. CYCLOBENZAPRINE HCL [Concomitant]
     Dosage: 10 MG, TID
  2. IBUPROFEN [Concomitant]
     Dosage: 800 MG/ EVERY 4-6 HOUR
  3. SYNTHROID [Concomitant]
  4. HYDROCODONE BITARTRATE AND ACETAMINOPHEN [Concomitant]
     Dosage: UNK UNK, PRN
  5. YASMIN [Suspect]
     Indication: CONTRACEPTION
     Dosage: UNK
     Dates: start: 20020101, end: 20050101

REACTIONS (12)
  - EMOTIONAL DISTRESS [None]
  - DIARRHOEA [None]
  - PAIN [None]
  - CONSTIPATION [None]
  - ABDOMINAL DISTENSION [None]
  - ANXIETY [None]
  - FLATULENCE [None]
  - CHOLELITHIASIS [None]
  - SCAR [None]
  - DYSPEPSIA [None]
  - GALLBLADDER DISORDER [None]
  - DEPRESSION [None]
